FAERS Safety Report 18587093 (Version 1)
Quarter: 2020Q4

REPORT INFORMATION
  Report Type: Spontaneous
  Country: FR (occurrence: FR)
  Receive Date: 20201207
  Receipt Date: 20201207
  Transmission Date: 20210114
  Serious: Yes (Death, Life-Threatening, Hospitalization)
  Sender: FDA-Public Use
  Company Number: FR-TEVA-2020-FR-1855041

PATIENT
  Age: 70 Year
  Sex: Female

DRUGS (19)
  1. SPECIAFOLDINE 5 MG, COMPRIME [Concomitant]
     Active Substance: FOLIC ACID
     Route: 048
  2. IFOSFAMIDE. [Suspect]
     Active Substance: IFOSFAMIDE
     Indication: CHEMOTHERAPY
     Dosage: UNKNOWN
     Route: 042
     Dates: start: 2008, end: 2008
  3. RITUXIMAB ((MAMMIFERE/HAMSTER/CELLULES CHO)) [Suspect]
     Active Substance: RITUXIMAB
     Indication: CHEMOTHERAPY
     Dosage: UNKNOWN
     Route: 042
     Dates: start: 2006, end: 2006
  4. BISOPROLOL (FUMARATE ACIDE DE) [Concomitant]
     Active Substance: BISOPROLOL FUMARATE
     Route: 048
  5. TRIATEC 10 MG, COMPRIME SECABLE [Concomitant]
     Route: 048
  6. VINORELBINE (DITARTRATE DE) [Suspect]
     Active Substance: VINORELBINE TARTRATE
     Indication: CHEMOTHERAPY
     Dosage: UNKNOWN
     Route: 042
     Dates: start: 2008, end: 2008
  7. INEXIUM 40 MG, COMPRIME GASTRO-RESISTANT [Concomitant]
     Active Substance: ESOMEPRAZOLE MAGNESIUM
     Route: 048
  8. ETOPOSIDE. [Suspect]
     Active Substance: ETOPOSIDE
     Indication: CHEMOTHERAPY
     Dosage: UNKNOWN
     Route: 042
     Dates: start: 2008, end: 2008
  9. MIMPARA 30 MG, COMPRIME PELLICULE [Concomitant]
     Active Substance: CINACALCET HYDROCHLORIDE
     Route: 048
  10. NASONEX [Concomitant]
     Active Substance: MOMETASONE FUROATE
     Route: 045
  11. VINCRISTINE (SULFATE DE) [Suspect]
     Active Substance: VINCRISTINE SULFATE
     Indication: CHEMOTHERAPY
     Dosage: UNKNOWN
     Route: 042
     Dates: start: 2006, end: 2006
  12. MEDIATOR [Suspect]
     Active Substance: BENFLUOREX
     Indication: WEIGHT INCREASED
     Dosage: UNKNOWN
     Route: 048
  13. SYMBICORT [Concomitant]
     Active Substance: BUDESONIDE\FORMOTEROL FUMARATE DIHYDRATE
     Route: 055
  14. ZYMAD 80 000 UI, SOLUTION BUVABLE EN AMPOULE [Concomitant]
     Active Substance: CHOLECALCIFEROL
     Route: 048
  15. LASILIX 40 MG, COMPRIME SECABLE [Concomitant]
     Active Substance: FUROSEMIDE
     Route: 048
  16. DOXORUBICINE [Suspect]
     Active Substance: DOXORUBICIN
     Indication: CHEMOTHERAPY
     Dosage: UNKNOWN
     Route: 042
     Dates: start: 2006, end: 2006
  17. LEVOTHYROX [Concomitant]
     Active Substance: LEVOTHYROXINE
     Route: 048
  18. MITOGUAZONE (DICHLORHYDRATE DE) MONOHYDRATE [Suspect]
     Active Substance: MITOGUAZONE DIHYDROCHLORIDE MONOHYDRATE
     Indication: CHEMOTHERAPY
     Dosage: UNKNOWN
     Route: 042
     Dates: start: 2008, end: 2008
  19. CYCLOPHOSPHAMIDE. [Suspect]
     Active Substance: CYCLOPHOSPHAMIDE
     Indication: CHEMOTHERAPY
     Dosage: UNKNOWN
     Route: 042
     Dates: start: 2006, end: 2006

REACTIONS (1)
  - Pulmonary arterial hypertension [Fatal]

NARRATIVE: CASE EVENT DATE: 2018
